FAERS Safety Report 6216674-9 (Version None)
Quarter: 2009Q2

REPORT INFORMATION
  Report Type: 
  Country: None (occurrence: None)
  Receive Date: 20090605
  Receipt Date: 20090603
  Transmission Date: 20091009
  Serious: Yes (Death)
  Sender: FDA-Public Use
  Company Number: JP-B.I. PHARMACEUTICALS,INC./RIDGEFIELD-2009-BP-06729NB

PATIENT
  Age: 63 Year
  Sex: Female
  Weight: 64.7 kg

DRUGS (5)
  1. BI-SIFROL TABLETS [Suspect]
     Indication: PARKINSON'S DISEASE
     Dosage: .75NR
     Route: 048
     Dates: start: 20071217, end: 20080101
  2. MADOPAR [Concomitant]
     Indication: PARKINSON'S DISEASE
     Dosage: 200MG
     Route: 048
     Dates: start: 20040930
  3. DOPS [Concomitant]
     Indication: PARKINSON'S DISEASE
     Dosage: 600MG
     Route: 048
     Dates: start: 20050726
  4. WYPAX [Concomitant]
     Indication: PARKINSON'S DISEASE
     Dosage: 1.5MG
     Route: 048
     Dates: start: 20050714
  5. ALINAMIN-F [Concomitant]
     Indication: NUTRITIONAL SUPPORT
     Dosage: 50MG
     Route: 048
     Dates: start: 20071211

REACTIONS (1)
  - DEATH [None]
